FAERS Safety Report 26181448 (Version 1)
Quarter: 2025Q4

REPORT INFORMATION
  Report Type: Report from Study
  Country: CN (occurrence: CN)
  Receive Date: 20251221
  Receipt Date: 20251221
  Transmission Date: 20260117
  Serious: Yes (Hospitalization)
  Sender: ELI LILLY AND COMPANY
  Company Number: CN-ELI_LILLY_AND_COMPANY-CN202512016415

PATIENT
  Age: 52 Year
  Sex: Female

DRUGS (2)
  1. RAMUCIRUMAB [Suspect]
     Active Substance: RAMUCIRUMAB
     Indication: Gastric cancer
     Dosage: 344 MG, UNKNOWN
     Route: 065
     Dates: start: 20251118
  2. BENMELSTOBART [Concomitant]
     Active Substance: BENMELSTOBART
     Indication: Gastric cancer
     Dosage: 1200 MG, UNKNOWN
     Route: 065
     Dates: start: 20251027

REACTIONS (7)
  - Haematemesis [Unknown]
  - Abdominal pain [Unknown]
  - Mood altered [Unknown]
  - Decreased appetite [Unknown]
  - Transaminases increased [Unknown]
  - Blood sodium decreased [Unknown]
  - Blood chloride decreased [Unknown]

NARRATIVE: CASE EVENT DATE: 20251205
